FAERS Safety Report 10022964 (Version 2)
Quarter: 2014Q1

REPORT INFORMATION
  Report Type: Spontaneous
  Country: US (occurrence: US)
  Receive Date: 20140319
  Receipt Date: 20140319
  Transmission Date: 20141002
  Serious: No
  Sender: FDA-Public Use
  Company Number: US-SANOFI-AVENTIS-2013SA010674

PATIENT
  Age: 39 Year
  Sex: Female

DRUGS (1)
  1. TRIAMCINOLONE ACETONIDE - WINTHROP [Suspect]
     Dates: start: 2011

REACTIONS (4)
  - Nasal congestion [Recovered/Resolved]
  - Drug ineffective [Unknown]
  - Product odour abnormal [Unknown]
  - Product substitution issue [Unknown]
